FAERS Safety Report 7300472-9 (Version None)
Quarter: 2011Q1

REPORT INFORMATION
  Report Type: 
  Country: None (occurrence: None)
  Receive Date: 20110217
  Receipt Date: 20110207
  Transmission Date: 20110831
  Serious: Yes (Hospitalization, Other)
  Sender: FDA-Public Use
  Company Number: PHHO2010DE19279

PATIENT
  Sex: Female
  Weight: 71 kg

DRUGS (23)
  1. EVEROLIMUS [Suspect]
     Indication: HEART TRANSPLANT
     Dosage: UNK
     Route: 048
     Dates: start: 20090711, end: 20100903
  2. EVEROLIMUS [Suspect]
     Dosage: 0.75MG AND 1.0MG PER DAY
     Route: 048
     Dates: start: 20100903, end: 20101220
  3. SANDIMMUNE [Suspect]
     Dosage: 50 MG, BID
     Route: 048
     Dates: start: 20100706
  4. VOTUM [Concomitant]
  5. SANDIMMUNE [Suspect]
     Indication: HEART TRANSPLANT
     Dosage: 250 MG, BID
     Route: 048
     Dates: start: 20090710
  6. IDEOS [Concomitant]
  7. TORSEMIDE [Concomitant]
  8. ACTONEL [Concomitant]
  9. MAGNESIUM [Concomitant]
  10. PREDNISOLONE [Suspect]
     Dosage: 0 MG, UNK
     Dates: start: 20101215
  11. SANDIMMUNE [Suspect]
     Dosage: 50 MG, BID
     Route: 048
     Dates: start: 20100903
  12. PREDNISOLONE [Suspect]
     Dosage: 10 MG IN MORNING
     Dates: start: 20100903
  13. SIMVASTATIN [Concomitant]
  14. VEROSPIRON [Concomitant]
  15. ACETYLSALICYLIC ACID [Concomitant]
  16. SANDIMMUNE [Suspect]
     Dosage: 75-0-50 MG
     Route: 048
     Dates: start: 20100428
  17. SANDIMMUNE [Suspect]
     Dosage: 50 MG, BID
     Dates: start: 20101215
  18. PREDNISOLONE [Suspect]
     Dosage: 7.5 MG, UNK
     Dates: start: 20100428
  19. PREDNISOLONE [Suspect]
     Dosage: 0 MG, UNK
     Dates: start: 20100706
  20. PANTOPRAZOLE [Concomitant]
  21. KALIUM RETARD [Concomitant]
  22. SANDIMMUNE [Suspect]
     Dosage: 50-0-25 MG
     Route: 048
  23. PREDNISOLONE [Suspect]
     Indication: HEART TRANSPLANT
     Dosage: 40-20-10 MG
     Route: 048
     Dates: start: 20090712

REACTIONS (7)
  - ANAEMIA [None]
  - RENAL FAILURE [None]
  - DIABETES MELLITUS [None]
  - TRICUSPID VALVE INCOMPETENCE [None]
  - IMMUNOSUPPRESSANT DRUG LEVEL INCREASED [None]
  - NEPHROPATHY TOXIC [None]
  - CONCOMITANT DISEASE PROGRESSION [None]
